FAERS Safety Report 15991204 (Version 1)
Quarter: 2019Q1

REPORT INFORMATION
  Report Type: Spontaneous
  Country: CN (occurrence: CN)
  Receive Date: 20190221
  Receipt Date: 20190221
  Transmission Date: 20190418
  Serious: Yes (Other)
  Sender: FDA-Public Use
  Company Number: CN-JNJFOC-20190219227

PATIENT
  Age: 58 Year
  Sex: Male
  Weight: 62 kg

DRUGS (8)
  1. RISPERDAL [Suspect]
     Active Substance: RISPERIDONE
     Indication: SLEEP DISORDER
     Route: 048
     Dates: start: 20180720, end: 20180721
  2. RISPERDAL [Suspect]
     Active Substance: RISPERIDONE
     Indication: COGNITIVE DISORDER
     Route: 048
     Dates: start: 20180714, end: 201807
  3. RISPERDAL [Suspect]
     Active Substance: RISPERIDONE
     Indication: SLEEP DISORDER
     Dosage: 2 MG AND 1 MG
     Route: 048
     Dates: start: 20180717, end: 201807
  4. RISPERDAL [Suspect]
     Active Substance: RISPERIDONE
     Indication: COGNITIVE DISORDER
     Dosage: 2 MG AND 1 MG
     Route: 048
     Dates: start: 20180717, end: 201807
  5. RISPERDAL [Suspect]
     Active Substance: RISPERIDONE
     Indication: SLEEP DISORDER
     Route: 048
     Dates: start: 20180714, end: 201807
  6. RISPERDAL [Suspect]
     Active Substance: RISPERIDONE
     Indication: SLEEP DISORDER
     Dosage: 1.5 MG AND 1 MG
     Route: 048
     Dates: start: 20180716, end: 201807
  7. RISPERDAL [Suspect]
     Active Substance: RISPERIDONE
     Indication: COGNITIVE DISORDER
     Dosage: 1.5 MG AND 1 MG
     Route: 048
     Dates: start: 20180716, end: 201807
  8. RISPERDAL [Suspect]
     Active Substance: RISPERIDONE
     Indication: COGNITIVE DISORDER
     Route: 048
     Dates: start: 20180720, end: 20180721

REACTIONS (7)
  - Product use in unapproved indication [Unknown]
  - Prostatic calcification [Recovering/Resolving]
  - Prostatomegaly [Recovering/Resolving]
  - Ureteric dilatation [Recovering/Resolving]
  - Off label use [Unknown]
  - Urinary retention [Recovering/Resolving]
  - Hydronephrosis [Recovering/Resolving]

NARRATIVE: CASE EVENT DATE: 20180714
